FAERS Safety Report 6008515-X (Version None)
Quarter: 2008Q4

REPORT INFORMATION
  Report Type: 
  Country: None (occurrence: None)
  Receive Date: 20081217
  Receipt Date: 20081205
  Transmission Date: 20090506
  Serious: Yes (Hospitalization)
  Sender: FDA-Public Use
  Company Number: US-ELI_LILLY_AND_COMPANY-US200812002011

PATIENT
  Sex: Female

DRUGS (3)
  1. CYMBALTA [Suspect]
     Indication: DEPRESSION
     Dosage: 60 MG, DAILY (1/D)
     Dates: start: 20060101, end: 20081001
  2. ANTIHYPERTENSIVE AGENT [Concomitant]
     Indication: HYPERTENSION
  3. LYRICA [Concomitant]

REACTIONS (4)
  - FALL [None]
  - KNEE ARTHROPLASTY [None]
  - ROTATOR CUFF REPAIR [None]
  - SPINAL FUSION SURGERY [None]
